FAERS Safety Report 7562945-3 (Version None)
Quarter: 2011Q2

REPORT INFORMATION
  Report Type: 
  Country: None (occurrence: None)
  Receive Date: 20110622
  Receipt Date: 20110531
  Transmission Date: 20111010
  Serious: No
  Sender: FDA-Public Use
  Company Number: US-B.I. PHARMACEUTICALS,INC./RIDGEFIELD-2011-BP-12635BP

PATIENT
  Age: 87 Year
  Sex: Female
  Weight: 73.03 kg

DRUGS (12)
  1. SPIRIVA [Concomitant]
  2. DILTIAZEM [Concomitant]
  3. POTASSIUM [Concomitant]
  4. FUROSEMIDE [Concomitant]
  5. WARFARIN SODIUM [Concomitant]
  6. ZETIA [Concomitant]
  7. PRADAXA [Suspect]
     Indication: ATRIAL FIBRILLATION
     Dosage: 300 MG
     Route: 048
     Dates: start: 20110318, end: 20110510
  8. PRAVASTATIN [Concomitant]
  9. ATENOLOL [Concomitant]
  10. SYNTHROID [Concomitant]
  11. ALENDRONATE SODIUM [Concomitant]
  12. CELEBREX [Concomitant]

REACTIONS (3)
  - CHEST PAIN [None]
  - DYSPEPSIA [None]
  - PAIN [None]
